FAERS Safety Report 13475331 (Version 5)
Quarter: 2018Q1

REPORT INFORMATION
  Report Type: Report from Study
  Country: US (occurrence: US)
  Receive Date: 20170424
  Receipt Date: 20180125
  Transmission Date: 20180508
  Serious: No
  Sender: FDA-Public Use
  Company Number: US-AMGEN-USASL2017059678

PATIENT
  Age: 64 Year
  Sex: Male
  Weight: 94.79 kg

DRUGS (1)
  1. REPATHA [Suspect]
     Active Substance: EVOLOCUMAB
     Indication: HYPERCHOLESTEROLAEMIA
     Dosage: 140 MG, Q2WK
     Route: 058
     Dates: start: 20160105

REACTIONS (7)
  - Injection site paraesthesia [Unknown]
  - Injection site reaction [Unknown]
  - Injection site pain [Recovered/Resolved]
  - Lack of injection site rotation [Unknown]
  - Feeling abnormal [Unknown]
  - Injection site discomfort [Unknown]
  - Mobility decreased [Unknown]

NARRATIVE: CASE EVENT DATE: 201703
